FAERS Safety Report 6733877-5 (Version None)
Quarter: 2010Q2

REPORT INFORMATION
  Report Type: 
  Country: None (occurrence: None)
  Receive Date: 20100520
  Receipt Date: 20100513
  Transmission Date: 20101027
  Serious: Yes (Life-Threatening, Hospitalization)
  Sender: FDA-Public Use
  Company Number: US-ROCHE-700986

PATIENT
  Sex: Male
  Weight: 68 kg

DRUGS (2)
  1. AVASTIN [Suspect]
     Dosage: DOSE:15MG/KG=1000MG, FREQUENCY:X1.
     Route: 042
     Dates: start: 20100401
  2. ALIMTA [Concomitant]
     Dates: start: 20100401

REACTIONS (1)
  - THROMBOTIC THROMBOCYTOPENIC PURPURA [None]
